FAERS Safety Report 6060157-6 (Version None)
Quarter: 2009Q1

REPORT INFORMATION
  Report Type: 
  Country: None (occurrence: None)
  Receive Date: 20090128
  Receipt Date: 20090115
  Transmission Date: 20090719
  Serious: Yes (Hospitalization)
  Sender: FDA-Public Use
  Company Number: 100#03#2009-00174

PATIENT
  Age: 72 Year
  Sex: Female

DRUGS (13)
  1. ALENDRONIC ACID (ALENDRONIC ACID) [Suspect]
     Indication: OSTEOARTHRITIS
  2. CALCICHEW (CALCIUM CARBONATE) [Suspect]
     Indication: OSTEOARTHRITIS
     Dosage: LDF ONCE, ORAL
     Route: 048
  3. CARBAMAZEPINE [Suspect]
     Indication: EPILEPSY
     Dosage: 200 MG THREE TIMES DAILY, ORAL
     Route: 048
  4. CODEINE PHOSPHATE (CODEINE) [Concomitant]
     Indication: MIGRAINE
     Dosage: ORAL
     Route: 048
  5. GAVISCON (ALGINIC ACID, ALUMINIUM HYDROXIDE, CALCIUM CARBONATE, MAGNES [Suspect]
     Indication: ILL-DEFINED DISORDER
     Dosage: ORAL
     Route: 048
  6. PANTOPRAZOLE SODIUM [Suspect]
     Indication: ILL-DEFINED DISORDER
     Dosage: 20 MG ONCE DAILY, ORAL
     Route: 048
  7. ACETAMINOPHEN [Suspect]
     Indication: MIGRAINE
     Dosage: ORAL
     Route: 048
  8. RISEDRONATE SODIUM [Suspect]
     Indication: OSTEOARTHRITIS
     Dosage: 35 MG ONCE DAILY, ORAL
     Route: 048
  9. SERETIDE (FLUTICASONE, SALMETEROL) [Suspect]
     Indication: ASTHMA
     Dosage: 2 DF TWICE DAILY, RESPIRATORY (INHALATION)
     Route: 055
     Dates: start: 20050101
  10. THYROXINE (LEVOTHYROXINE, THYROXINE) [Suspect]
     Indication: HYPOTHYROIDISM
     Dosage: 100 ?G ONCE DAILY, ORAL
     Route: 048
  11. VENTOLIN [Suspect]
     Indication: ASTHMA
     Dosage: RESPIRATORY (INHALATION)
     Route: 055
  12. WARFARIN SODIUM [Suspect]
     Indication: DEEP VEIN THROMBOSIS
     Dosage: (ONCE DAILY), ORAL
     Route: 048
  13. ZOLMITRIPTAN (ZOLMITRIPTAN) [Suspect]
     Indication: MIGRAINE
     Dosage: ORAL
     Route: 048

REACTIONS (3)
  - CEREBROVASCULAR ACCIDENT [None]
  - COUGH [None]
  - DYSPNOEA [None]
